FAERS Safety Report 16538137 (Version 2)
Quarter: 2019Q3

REPORT INFORMATION
  Report Type: Spontaneous
  Country: US (occurrence: US)
  Receive Date: 20190708
  Receipt Date: 20190925
  Transmission Date: 20191004
  Serious: Yes (Other)
  Sender: FDA-Public Use
  Company Number: US-SA-2019SA178687

PATIENT
  Age: 66 Year
  Sex: Female
  Weight: 92 kg

DRUGS (23)
  1. DEXILANT [Concomitant]
     Active Substance: DEXLANSOPRAZOLE
  2. LORATADINE. [Concomitant]
     Active Substance: LORATADINE
  3. RANITIDINE EUROGENERICS [Concomitant]
  4. ONDANSETRON [Concomitant]
     Active Substance: ONDANSETRON
  5. POTASSIUM [Concomitant]
     Active Substance: POTASSIUM
  6. TAXOTERE [Suspect]
     Active Substance: DOCETAXEL
     Dosage: 166 MG, Q3W
     Route: 042
     Dates: start: 20170926, end: 20170926
  7. LISINOPRIL. [Concomitant]
     Active Substance: LISINOPRIL
     Dosage: UNK
     Dates: start: 2003
  8. PARAPLATIN [Concomitant]
     Active Substance: CARBOPLATIN
     Indication: BREAST CANCER STAGE II
     Dosage: UNK
     Dates: start: 20170719, end: 20170719
  9. MELOXICAM. [Concomitant]
     Active Substance: MELOXICAM
  10. TAXOTERE [Suspect]
     Active Substance: DOCETAXEL
     Indication: BREAST CANCER STAGE II
     Dosage: 166 MG, Q3W
     Route: 042
     Dates: start: 20170719, end: 20170719
  11. CETIRIZINE [Concomitant]
     Active Substance: CETIRIZINE HYDROCHLORIDE
  12. HYDROMET [HYDROCHLOROTHIAZIDE;METHYLDOPA] [Concomitant]
  13. TRIAMCINOLONE [Concomitant]
     Active Substance: TRIAMCINOLONE
  14. CEFDINIR. [Concomitant]
     Active Substance: CEFDINIR
  15. PREDNISONE. [Concomitant]
     Active Substance: PREDNISONE
  16. METHYLPREDNISOLONE. [Concomitant]
     Active Substance: METHYLPREDNISOLONE
     Dosage: UNK
  17. OMEPRAZOLE. [Concomitant]
     Active Substance: OMEPRAZOLE
  18. FLUTICASONE. [Concomitant]
     Active Substance: FLUTICASONE
  19. HYDROXYZINE [Concomitant]
     Active Substance: HYDROXYZINE HYDROCHLORIDE
  20. AZITHROMYCIN ANHYDROUS. [Concomitant]
     Active Substance: AZITHROMYCIN ANHYDROUS
  21. PARAPLATIN [Concomitant]
     Active Substance: CARBOPLATIN
     Dosage: UNK
     Dates: start: 20170926, end: 20170926
  22. PROCHLORPERAZINE. [Concomitant]
     Active Substance: PROCHLORPERAZINE
  23. BENZONATATE. [Concomitant]
     Active Substance: BENZONATATE

REACTIONS (2)
  - Alopecia [Not Recovered/Not Resolved]
  - Psychological trauma [Unknown]

NARRATIVE: CASE EVENT DATE: 20170930
